FAERS Safety Report 12598965 (Version 2)
Quarter: 2016Q4

REPORT INFORMATION
  Report Type: Spontaneous
  Country: CN (occurrence: CN)
  Receive Date: 20160726
  Receipt Date: 20161018
  Transmission Date: 20170207
  Serious: Yes (Other)
  Sender: FDA-Public Use
  Company Number: CN-JNJFOC-20160711297

PATIENT

DRUGS (2)
  1. ACETAMINOPHEN. [Suspect]
     Active Substance: ACETAMINOPHEN
     Route: 048
  2. ACETAMINOPHEN. [Suspect]
     Active Substance: ACETAMINOPHEN
     Indication: PATENT DUCTUS ARTERIOSUS
     Dosage: EVERY 6 HOURS FOR 3 DAYS (32 MG / ML, DILUTED TO 15 MG/ML).
     Route: 048

REACTIONS (7)
  - Product use issue [Unknown]
  - Oliguria [Unknown]
  - Necrotising enterocolitis neonatal [Unknown]
  - Occult blood positive [Unknown]
  - Bronchopulmonary dysplasia [Unknown]
  - Off label use [Unknown]
  - Intraventricular haemorrhage [Unknown]
